FAERS Safety Report 8048198-0 (Version None)
Quarter: 2012Q1

REPORT INFORMATION
  Report Type: 
  Country: None (occurrence: None)
  Receive Date: 20120117
  Receipt Date: 20120113
  Transmission Date: 20120608
  Serious: Yes (Hospitalization)
  Sender: FDA-Public Use
  Company Number: IT-JNJFOC-20120104554

PATIENT
  Sex: Female

DRUGS (7)
  1. TACHIDOL [Concomitant]
     Route: 065
  2. XANAX [Concomitant]
     Route: 065
  3. NEXIUM [Concomitant]
     Route: 065
  4. LEVOFLOXACIN [Suspect]
     Indication: TONSILLITIS
     Route: 048
     Dates: start: 20111216, end: 20111225
  5. DELORAZEPAM [Concomitant]
     Route: 065
  6. DISSENTEN [Concomitant]
     Route: 065
  7. CITALOPRAM HYDROBROMIDE [Concomitant]
     Route: 065

REACTIONS (3)
  - URTICARIA [None]
  - PRURITUS GENERALISED [None]
  - PAPULE [None]
